FAERS Safety Report 25554609 (Version 1)
Quarter: 2025Q3

REPORT INFORMATION
  Report Type: Spontaneous
  Country: US (occurrence: US)
  Receive Date: 20250715
  Receipt Date: 20250715
  Transmission Date: 20251021
  Serious: No
  Sender: SENTISS AG
  Company Number: US-SENTISSAG-2025SAGSPO-00013

PATIENT
  Age: 71 Year
  Sex: Female
  Weight: 170 kg

DRUGS (4)
  1. ERYTHROMYCIN [Suspect]
     Active Substance: ERYTHROMYCIN
     Indication: Infection
     Dosage: AT THE END OF THE DAY
     Dates: start: 20250701, end: 20250701
  2. ERYTHROMYCIN [Suspect]
     Active Substance: ERYTHROMYCIN
     Dates: start: 20250702, end: 202507
  3. ERYTHROMYCIN [Suspect]
     Active Substance: ERYTHROMYCIN
     Dates: start: 202507, end: 202507
  4. ERYTHROMYCIN [Suspect]
     Active Substance: ERYTHROMYCIN
     Dates: start: 202507

REACTIONS (2)
  - Ocular hyperaemia [Recovering/Resolving]
  - Incorrect dose administered [Unknown]

NARRATIVE: CASE EVENT DATE: 20250701
